FAERS Safety Report 5298578-1 (Version None)
Quarter: 2007Q2

REPORT INFORMATION
  Report Type: 
  Country: None (occurrence: None)
  Receive Date: 20070409
  Receipt Date: 20070326
  Transmission Date: 20071010
  Serious: Yes (Other)
  Sender: FDA-Public Use
  Company Number: CHPA2007US04064

PATIENT
  Age: 87 Year
  Sex: Male
  Weight: 72.6 kg

DRUGS (7)
  1. TRANSDERM SCOP [Suspect]
     Indication: MOTION SICKNESS
     Dosage: 1.5 MG, QD, TRANSDERMAL
     Route: 062
     Dates: start: 20070305, end: 20070307
  2. PLAVIX [Concomitant]
  3. NEXIUM [Concomitant]
  4. ARICEPT [Concomitant]
  5. LIPITOR [Concomitant]
  6. FLOMAX [Concomitant]
  7. ATENOLOL [Concomitant]

REACTIONS (5)
  - AGGRESSION [None]
  - AMNESIA [None]
  - FEELING ABNORMAL [None]
  - HALLUCINATION [None]
  - INAPPROPRIATE SCHEDULE OF DRUG ADMINISTRATION [None]
